FAERS Safety Report 6428516-7 (Version None)
Quarter: 2009Q4

REPORT INFORMATION
  Report Type: 
  Country: None (occurrence: None)
  Receive Date: 20091104
  Receipt Date: 20091104
  Transmission Date: 20100525
  Serious: Yes (Hospitalization)
  Sender: FDA-Public Use
  Company Number: None

PATIENT
  Age: 67 Year
  Sex: Male

DRUGS (1)
  1. INSULIN [Suspect]
     Dosage: BID SQ
     Route: 058
     Dates: start: 20060822, end: 20090701

REACTIONS (5)
  - DECREASED APPETITE [None]
  - FALL [None]
  - HYPOGLYCAEMIA [None]
  - PALLOR [None]
  - SYNCOPE [None]
